FAERS Safety Report 13245799 (Version 1)
Quarter: 2017Q1

REPORT INFORMATION
  Report Type: Spontaneous
  Country: US (occurrence: US)
  Receive Date: 20170217
  Receipt Date: 20170217
  Transmission Date: 20170428
  Serious: No
  Sender: FDA-Public Use
  Company Number: US-BAYER-2017-027937

PATIENT
  Sex: Female

DRUGS (1)
  1. BETASERON [Suspect]
     Active Substance: INTERFERON BETA-1B
     Dosage: 0.35 MG, QOD
     Route: 058

REACTIONS (5)
  - Musculoskeletal pain [None]
  - Slow speech [None]
  - Buttock injury [None]
  - Tremor [None]
  - Product use issue [None]
